FAERS Safety Report 5768529-1 (Version None)
Quarter: 2008Q2

REPORT INFORMATION
  Report Type: 
  Country: None (occurrence: None)
  Receive Date: 20080610
  Receipt Date: 20080529
  Transmission Date: 20081010
  Serious: Yes (Hospitalization, Other)
  Sender: FDA-Public Use
  Company Number: 080529-0000486

PATIENT
  Age: 32 Year
  Sex: Male

DRUGS (5)
  1. METHAMPHETAMINE HYDROCHLORIDE [Suspect]
     Indication: DRUG USE FOR UNKNOWN INDICATION
  2. TENOFOVIR DISOPROXIL FUMARATE [Concomitant]
  3. EMTRICITABINE [Concomitant]
  4. ATAZANAVIR [Concomitant]
  5. RITONAVIR [Concomitant]

REACTIONS (2)
  - ANOREXIA [None]
  - RHABDOMYOLYSIS [None]
